FAERS Safety Report 7297887-4 (Version None)
Quarter: 2011Q1

REPORT INFORMATION
  Report Type: 
  Country: None (occurrence: None)
  Receive Date: 20110217
  Receipt Date: 20110214
  Transmission Date: 20110831
  Serious: No
  Sender: FDA-Public Use
  Company Number: US-JNJFOC-20100908443

PATIENT
  Sex: Male
  Weight: 80.29 kg

DRUGS (2)
  1. LORAZEPAM [Concomitant]
     Indication: BREAKTHROUGH PAIN
     Route: 048
  2. FENTANYL-100 [Suspect]
     Indication: PAIN
     Route: 062

REACTIONS (5)
  - INSOMNIA [None]
  - PRODUCT ADHESION ISSUE [None]
  - INCORRECT DOSE ADMINISTERED [None]
  - WITHDRAWAL SYNDROME [None]
  - WRONG TECHNIQUE IN DRUG USAGE PROCESS [None]
